FAERS Safety Report 17732761 (Version 3)
Quarter: 2021Q2

REPORT INFORMATION
  Report Type: Spontaneous
  Country: US (occurrence: US)
  Receive Date: 20200501
  Receipt Date: 20210416
  Transmission Date: 20210716
  Serious: Yes (Hospitalization, Other)
  Sender: FDA-Public Use
  Company Number: US-ASTRAZENECA-2020SE55819

PATIENT
  Age: 73 Year
  Sex: Female
  Weight: 108 kg

DRUGS (34)
  1. SIMVASTATIN. [Concomitant]
     Active Substance: SIMVASTATIN
  2. KEFLEX [Concomitant]
     Active Substance: CEPHALEXIN
  3. RESTASIS [Concomitant]
     Active Substance: CYCLOSPORINE
  4. LOSARTAN. [Concomitant]
     Active Substance: LOSARTAN
  5. OXYCODONE [Concomitant]
     Active Substance: OXYCODONE
  6. VESICARE [Concomitant]
     Active Substance: SOLIFENACIN SUCCINATE
  7. MIRALAX [Concomitant]
     Active Substance: POLYETHYLENE GLYCOL 3350
  8. METOPROLOL. [Concomitant]
     Active Substance: METOPROLOL
  9. MEDROL [Concomitant]
     Active Substance: METHYLPREDNISOLONE
  10. SILVADENE [Concomitant]
     Active Substance: SILVER SULFADIAZINE
  11. AUGMENTIN [Concomitant]
     Active Substance: AMOXICILLIN\CLAVULANATE POTASSIUM
  12. CHOLEST [Concomitant]
  13. ASPIRIN. [Concomitant]
     Active Substance: ASPIRIN
  14. CALCITRIOL. [Concomitant]
     Active Substance: CALCITRIOL
  15. QUETIAPINE. [Concomitant]
     Active Substance: QUETIAPINE
  16. HYDROCHLOROTHIAZIDE. [Concomitant]
     Active Substance: HYDROCHLOROTHIAZIDE
  17. CALTRATE [Concomitant]
     Active Substance: CALCIUM CARBONATE
  18. PRILOSEC [Suspect]
     Active Substance: OMEPRAZOLE MAGNESIUM
     Indication: GASTROOESOPHAGEAL REFLUX DISEASE
     Route: 048
     Dates: start: 199801, end: 201812
  19. NYSTATIN. [Concomitant]
     Active Substance: NYSTATIN
  20. BUMEX [Concomitant]
     Active Substance: BUMETANIDE
  21. GARLIC. [Concomitant]
     Active Substance: GARLIC
  22. PRILOSEC [Suspect]
     Active Substance: OMEPRAZOLE MAGNESIUM
     Indication: GASTROOESOPHAGEAL REFLUX DISEASE
     Route: 048
     Dates: start: 1998, end: 2018
  23. LIDOCAINE. [Concomitant]
     Active Substance: LIDOCAINE
  24. RANITIDINE. [Concomitant]
     Active Substance: RANITIDINE
  25. OXYBUTYNIN. [Concomitant]
     Active Substance: OXYBUTYNIN CHLORIDE
  26. GABAPENTIN. [Concomitant]
     Active Substance: GABAPENTIN
  27. LEVOTHYROXINE. [Concomitant]
     Active Substance: LEVOTHYROXINE
  28. METFORMIN [Concomitant]
     Active Substance: METFORMIN HYDROCHLORIDE
  29. ALENDRONATE [Concomitant]
     Active Substance: ALENDRONATE SODIUM
  30. OMEGA 3 FATTY ACID [Concomitant]
     Active Substance: OMEGA-3 FATTY ACIDS
  31. VITAMIN B12 [Concomitant]
     Active Substance: CYANOCOBALAMIN
  32. TRIAMTERENE. [Concomitant]
     Active Substance: TRIAMTERENE
  33. BUMETANIDE. [Concomitant]
     Active Substance: BUMETANIDE
  34. MELOXICAM. [Concomitant]
     Active Substance: MELOXICAM

REACTIONS (3)
  - Chronic kidney disease [Not Recovered/Not Resolved]
  - Renal failure [Unknown]
  - Nephrogenic anaemia [Unknown]

NARRATIVE: CASE EVENT DATE: 2018
